FAERS Safety Report 6012384-1 (Version None)
Quarter: 2008Q4

REPORT INFORMATION
  Report Type: 
  Country: None (occurrence: None)
  Receive Date: 20081218
  Receipt Date: 20080926
  Transmission Date: 20090506
  Serious: No
  Sender: FDA-Public Use
  Company Number: US-ASTRAZENECA-2008UW20634

PATIENT
  Sex: Female

DRUGS (2)
  1. SYMBICORT [Suspect]
     Route: 055
  2. ANTIBIOTIC [Concomitant]

REACTIONS (3)
  - FEELING ABNORMAL [None]
  - MALAISE [None]
  - MULTIPLE ALLERGIES [None]
